FAERS Safety Report 5334415-4 (Version None)
Quarter: 2007Q2

REPORT INFORMATION
  Report Type: 
  Country: None (occurrence: None)
  Receive Date: 20070522
  Receipt Date: 20051031
  Transmission Date: 20071010
  Serious: Yes (Disabling)
  Sender: FDA-Public Use
  Company Number: 2005-0001

PATIENT
  Age: 30 Year
  Sex: Female
  Weight: 68.0396 kg

DRUGS (19)
  1. HYOSCYAMINE SULFATE ELIXIR [Suspect]
     Indication: GASTROOESOPHAGEAL REFLUX DISEASE
     Dosage: 2 TSP, (4 TIMES DAILY)
  2. GABAPENTIN [Concomitant]
  3. CARBAMAZEPINE [Concomitant]
  4. BACLOFEN [Concomitant]
  5. CLONIDINE [Concomitant]
  6. NAMENDA [Concomitant]
  7. CYMBALTA [Concomitant]
  8. METFORMIN HCL [Concomitant]
  9. SINGULAIR [Concomitant]
  10. ALLEGRA [Concomitant]
  11. NICOMID [Concomitant]
  12. DRISDOL [Concomitant]
  13. HYOSYNE DROPS [Concomitant]
  14. ES GAVISCON [Concomitant]
  15. LIDODERM [Concomitant]
  16. PROVENTIL INHALER [Concomitant]
  17. ADV CENTRUM [Concomitant]
  18. CALCIUM CITRATE [Concomitant]
  19. INTRATHECAL SALINE (INFUSION) [Concomitant]

REACTIONS (10)
  - BLINDNESS UNILATERAL [None]
  - CHOKING [None]
  - CONVULSION [None]
  - COUGH [None]
  - DIPLOPIA [None]
  - DRUG INEFFECTIVE [None]
  - DYSPHONIA [None]
  - EYE MOVEMENT DISORDER [None]
  - FEELING DRUNK [None]
  - STUPOR [None]
